FAERS Safety Report 13801931 (Version 2)
Quarter: 2017Q3

REPORT INFORMATION
  Report Type: Report from Study
  Country: BR (occurrence: BR)
  Receive Date: 20170727
  Receipt Date: 20170811
  Transmission Date: 20171127
  Serious: Yes (Death)
  Sender: FDA-Public Use
  Company Number: BR-B.I. PHARMACEUTICALS,INC./RIDGEFIELD-2016-BI-55841BR

PATIENT
  Age: 72 Year
  Sex: Female
  Weight: 54 kg

DRUGS (8)
  1. MODURETIC 5-50 [Concomitant]
     Active Substance: AMILORIDE HYDROCHLORIDE\HYDROCHLOROTHIAZIDE
     Indication: HYPERTENSION
     Route: 048
     Dates: start: 2012, end: 201702
  2. DEFLAIMMUN [Concomitant]
     Active Substance: DEFLAZACORT
     Indication: IDIOPATHIC PULMONARY FIBROSIS
     Dosage: STRENGTH: 22.75MG/ML
     Route: 048
     Dates: start: 2015, end: 201702
  3. DIOVAN [Concomitant]
     Active Substance: VALSARTAN
     Indication: HYPERTENSION
     Route: 048
     Dates: start: 2012, end: 201702
  4. NEBLOCK [Concomitant]
     Active Substance: NEBIVOLOL HYDROCHLORIDE
     Indication: HYPERTENSION
     Route: 048
     Dates: start: 2012, end: 201702
  5. OFEV [Suspect]
     Active Substance: NINTEDANIB
     Indication: IDIOPATHIC PULMONARY FIBROSIS
     Route: 048
     Dates: start: 20160816, end: 20170203
  6. ACETILCISTEINA [Concomitant]
     Active Substance: ACETYLCYSTEINE
     Indication: IDIOPATHIC PULMONARY FIBROSIS
     Route: 048
     Dates: start: 2015, end: 201702
  7. FLUIR [Concomitant]
     Active Substance: FORMOTEROL FUMARATE
     Indication: IDIOPATHIC PULMONARY FIBROSIS
     Route: 055
     Dates: start: 2015, end: 201702
  8. ADALAT [Concomitant]
     Active Substance: NIFEDIPINE
     Indication: HYPERTENSION
     Route: 048
     Dates: start: 2012, end: 20170203

REACTIONS (15)
  - Respiratory arrest [Fatal]
  - Dyspnoea [Fatal]
  - Diarrhoea [Recovered/Resolved]
  - Cardiac arrest [Fatal]
  - Diarrhoea [Recovered/Resolved]
  - Feeling abnormal [Unknown]
  - Syncope [Unknown]
  - Decreased appetite [Not Recovered/Not Resolved]
  - Drug ineffective [Unknown]
  - Idiopathic pulmonary fibrosis [Fatal]
  - Respiratory failure [Fatal]
  - Weight decreased [Not Recovered/Not Resolved]
  - Nausea [Not Recovered/Not Resolved]
  - Abdominal discomfort [Not Recovered/Not Resolved]
  - Maximal voluntary ventilation decreased [Unknown]

NARRATIVE: CASE EVENT DATE: 20160823
